FAERS Safety Report 8891226 (Version 1)
Quarter: 2012Q4

REPORT INFORMATION
  Report Type: 
  Country: IT (occurrence: IT)
  Receive Date: 20121107
  Receipt Date: 20121107
  Transmission Date: 20130627
  Serious: Yes (Hospitalization)
  Sender: FDA-Public Use
  Company Number: IT-ROCHE-1143009

PATIENT
  Age: 42 Year
  Sex: Female

DRUGS (2)
  1. RIVOTRIL [Suspect]
     Indication: ANXIETY
     Dosage: oral gtt 2,5 mg/ml
     Route: 048
     Dates: start: 20120918, end: 20120918
  2. LAMICTAL [Suspect]
     Indication: ANXIETY
     Route: 048
     Dates: start: 20120918, end: 20120918

REACTIONS (1)
  - Loss of consciousness [Recovering/Resolving]
